FAERS Safety Report 18250628 (Version 1)
Quarter: 2020Q3

REPORT INFORMATION
  Report Type: Spontaneous
  Country: US (occurrence: US)
  Receive Date: 20200910
  Receipt Date: 20200910
  Transmission Date: 20201103
  Serious: Yes (Hospitalization, Other)
  Sender: FDA-Public Use
  Company Number: US-AUROBINDO-AUR-APL-2020-047099

PATIENT
  Age: 13 Year
  Sex: Female

DRUGS (2)
  1. FLUOXETINE [Concomitant]
     Active Substance: FLUOXETINE HYDROCHLORIDE
     Indication: DEPRESSION
     Dosage: UNK UNK, DAILY
     Route: 065
  2. DIPHENHYDRAMINE. [Suspect]
     Active Substance: DIPHENHYDRAMINE
     Indication: PRODUCT USED FOR UNKNOWN INDICATION
     Dosage: UNK
     Route: 065

REACTIONS (12)
  - Hallucination [Recovered/Resolved]
  - Tachycardia [Recovered/Resolved]
  - Drug level above therapeutic [Unknown]
  - Hyperchloraemia [Recovered/Resolved]
  - Hypokalaemia [Recovered/Resolved]
  - Hypertension [Recovered/Resolved]
  - Toxicity to various agents [Unknown]
  - Sinus tachycardia [Recovered/Resolved]
  - Tremor [Recovered/Resolved]
  - Seizure [Recovered/Resolved]
  - Confusional state [Recovered/Resolved]
  - Drug abuse [Unknown]
